FAERS Safety Report 8037517-7 (Version None)
Quarter: 2012Q1

REPORT INFORMATION
  Report Type: 
  Country: None (occurrence: None)
  Receive Date: 20120106
  Receipt Date: 20111221
  Transmission Date: 20120608
  Serious: Yes (Death, Other)
  Sender: FDA-Public Use
  Company Number: 1000026614

PATIENT

DRUGS (1)
  1. DINOPROSTONE) (10 MILLIGRAM, VAGINAL INSERT) [Suspect]
     Dosage: (10 MG), TRANSPLACENTAL
     Route: 064

REACTIONS (4)
  - MATERNAL DRUGS AFFECTING FOETUS [None]
  - DEATH NEONATAL [None]
  - HEART SOUNDS ABNORMAL [None]
  - CAESAREAN SECTION [None]
